FAERS Safety Report 4386940-0 (Version None)
Quarter: 2004Q2

REPORT INFORMATION
  Report Type: 
  Country: None (occurrence: None)
  Receive Date: 20040623
  Receipt Date: 20040512
  Transmission Date: 20050107
  Serious: Yes (Other)
  Sender: FDA-Public Use
  Company Number: 2004RL000012

PATIENT
  Age: 78 Year
  Sex: Female

DRUGS (4)
  1. DYNACIRC CR [Suspect]
     Indication: HYPERTENSION
     Dosage: 5 MG;QD;PO
     Route: 048
     Dates: start: 20040507, end: 20040510
  2. DIOVAN [Concomitant]
  3. INDERAL [Concomitant]
  4. ASPIRIN [Concomitant]

REACTIONS (3)
  - CONSCIOUSNESS FLUCTUATING [None]
  - DELIRIUM [None]
  - PARANOIA [None]
